FAERS Safety Report 17673902 (Version 1)
Quarter: 2020Q2

REPORT INFORMATION
  Report Type: Spontaneous
  Country: US (occurrence: US)
  Receive Date: 20200415
  Receipt Date: 20200415
  Transmission Date: 20200714
  Serious: No
  Sender: FDA-Public Use
  Company Number: US-ALKERMES INC.-ALK-2019-003973

PATIENT
  Age: 26 Year
  Sex: Female
  Weight: 136.5 kg

DRUGS (1)
  1. VIVITROL [Suspect]
     Active Substance: NALTREXONE
     Indication: DRUG DEPENDENCE
     Dosage: 380 MG, QMO
     Route: 030
     Dates: start: 2018

REACTIONS (5)
  - Impulsive behaviour [Not Recovered/Not Resolved]
  - Drug dependence [Not Recovered/Not Resolved]
  - Theft [Not Recovered/Not Resolved]
  - Weight control [Unknown]
  - Procedural pain [Not Recovered/Not Resolved]
